FAERS Safety Report 23914111 (Version 2)
Quarter: 2024Q3

REPORT INFORMATION
  Report Type: Spontaneous
  Country: US (occurrence: US)
  Receive Date: 20240529
  Receipt Date: 20240729
  Transmission Date: 20241017
  Serious: No
  Sender: JOHNSON AND JOHNSON
  Company Number: US-JNJFOC-20240576016

PATIENT
  Age: 50 Year
  Sex: Male

DRUGS (2)
  1. SELEXIPAG [Suspect]
     Active Substance: SELEXIPAG
     Indication: Pulmonary arterial hypertension
     Route: 048
     Dates: start: 202107
  2. AMBRISENTAN [Suspect]
     Active Substance: AMBRISENTAN
     Indication: Pulmonary arterial hypertension
     Route: 065
     Dates: start: 202405

REACTIONS (5)
  - Dyspnoea exertional [Unknown]
  - Peripheral swelling [Unknown]
  - Joint swelling [Unknown]
  - Weight fluctuation [Unknown]
  - Treatment noncompliance [Unknown]
